FAERS Safety Report 7639162-1 (Version None)
Quarter: 2011Q3

REPORT INFORMATION
  Report Type: 
  Country: None (occurrence: None)
  Receive Date: 20110721
  Receipt Date: 20110707
  Transmission Date: 20111222
  Serious: Yes (Hospitalization)
  Sender: FDA-Public Use
  Company Number: 1000022201

PATIENT
  Age: 45 Year
  Sex: Male

DRUGS (1)
  1. CAMPRAL [Suspect]
     Indication: ALCOHOL ABUSE
     Dosage: 1322 MG (333 MG, 2 DF IN MORNING, 1 AT NOON, 1 IN EVENING), ORAL
     Route: 048
     Dates: start: 20110629, end: 20110701

REACTIONS (5)
  - WITHDRAWAL SYNDROME [None]
  - PHARYNGEAL OEDEMA [None]
  - TREMOR [None]
  - HYPOPHAGIA [None]
  - SWELLING FACE [None]
